FAERS Safety Report 9680876 (Version 1)
Quarter: 2013Q4

REPORT INFORMATION
  Report Type: Spontaneous
  Country: SE (occurrence: SE)
  Receive Date: 20131111
  Receipt Date: 20131111
  Transmission Date: 20140711
  Serious: Yes (Other)
  Sender: FDA-Public Use
  Company Number: SE-ASTELLAS-2013EU009593

PATIENT
  Age: 8 Year
  Sex: Male

DRUGS (3)
  1. TACROLIMUS SYSTEMIC [Suspect]
     Indication: ORGAN TRANSPLANT
     Dosage: UNK
     Route: 065
  2. ATG /00575401/ [Suspect]
     Indication: IMMUNOSUPPRESSION
     Dosage: UNK
     Route: 065
  3. CORTICOSTEROID NOS [Suspect]
     Indication: IMMUNOSUPPRESSION
     Dosage: UNK
     Route: 065

REACTIONS (5)
  - Off label use [Unknown]
  - Transplant rejection [Recovering/Resolving]
  - Graft versus host disease [Recovering/Resolving]
  - Post transplant lymphoproliferative disorder [Recovered/Resolved]
  - Epstein-Barr virus infection [Recovered/Resolved]
